FAERS Safety Report 4809808-1 (Version None)
Quarter: 2005Q4

REPORT INFORMATION
  Report Type: 
  Country: None (occurrence: None)
  Receive Date: 20051024
  Receipt Date: 20051012
  Transmission Date: 20060501
  Serious: Yes (Death)
  Sender: FDA-Public Use
  Company Number: USA-2005-0021552

PATIENT
  Age: 23 Year
  Sex: 0

DRUGS (4)
  1. OXYCODONE HCL [Suspect]
     Dosage: UNK, SEE TEXT, UNKNOWN
     Route: 065
  2. ACETAMINOPHEN [Suspect]
     Dosage: UNK, TEXT, UNKNOWN
     Route: 065
  3. HYDROCODONE BITARTRATE [Suspect]
     Dosage: UNK, SEE TEXT, UNKNOWN
     Route: 065
  4. ALPRAZOLAM [Suspect]
     Dosage: UNK, SEE TEXT, UNKNOWN
     Route: 065

REACTIONS (1)
  - TOXICOLOGIC TEST ABNORMAL [None]
